FAERS Safety Report 23267590 (Version 4)
Quarter: 2023Q4

REPORT INFORMATION
  Report Type: Spontaneous
  Country: US (occurrence: US)
  Receive Date: 20231206
  Receipt Date: 20231213
  Transmission Date: 20240110
  Serious: No
  Sender: FDA-Public Use
  Company Number: US-PFIZER INC-PV202300191234

PATIENT
  Age: 2 Year
  Sex: Female
  Weight: 13.15 kg

DRUGS (1)
  1. GENOTROPIN [Suspect]
     Active Substance: SOMATROPIN
     Indication: Growth hormone deficiency
     Dosage: 0.4 MG, 6 TIMES A WEEK

REACTIONS (6)
  - Drug dose omission by device [Unknown]
  - Device use issue [Unknown]
  - Device occlusion [Unknown]
  - Device information output issue [Unknown]
  - Device power source issue [Unknown]
  - Device mechanical issue [Unknown]
